FAERS Safety Report 9692310 (Version 1)
Quarter: 2013Q4

REPORT INFORMATION
  Report Type: Spontaneous
  Country: IT (occurrence: IT)
  Receive Date: 20131118
  Receipt Date: 20131118
  Transmission Date: 20140711
  Serious: Yes (Other)
  Sender: FDA-Public Use
  Company Number: IT-ACCORD-020282

PATIENT
  Age: 72 Year
  Sex: Male
  Weight: 65 kg

DRUGS (4)
  1. RANIDIL [Concomitant]
     Route: 042
     Dates: start: 20130402, end: 20130510
  2. GEMCITABINE [Suspect]
     Indication: LUNG NEOPLASM MALIGNANT
     Route: 042
     Dates: start: 20130402, end: 20130510
  3. SOLDESAM [Concomitant]
     Route: 042
     Dates: start: 20130402, end: 20130510
  4. ONDANSETRON [Concomitant]
     Route: 042
     Dates: start: 20130402, end: 20130510

REACTIONS (2)
  - Fatigue [Unknown]
  - Formication [Unknown]
